FAERS Safety Report 11617002 (Version 3)
Quarter: 2016Q3

REPORT INFORMATION
  Report Type: Spontaneous
  Country: US (occurrence: US)
  Receive Date: 20151009
  Receipt Date: 20160804
  Transmission Date: 20161109
  Serious: Yes (Other)
  Sender: FDA-Public Use
  Company Number: US-BAYER-2015-435141

PATIENT
  Sex: Male
  Weight: 92.97 kg

DRUGS (3)
  1. AVELOX [Suspect]
     Active Substance: MOXIFLOXACIN HYDROCHLORIDE
     Indication: SINUSITIS
     Dosage: 400 MG, UNK
     Dates: start: 20050701, end: 20050720
  2. AVELOX [Suspect]
     Active Substance: MOXIFLOXACIN HYDROCHLORIDE
     Indication: SINUSITIS
     Dosage: 400 MG, UNK
     Dates: start: 20050807
  3. CIPROFLOXACIN. [Suspect]
     Active Substance: CIPROFLOXACIN
     Dosage: 0.3 %, UNK
     Dates: start: 20050909

REACTIONS (12)
  - Injury [None]
  - Anxiety [None]
  - Pain [None]
  - Post-traumatic stress disorder [None]
  - Neuropathy peripheral [None]
  - Musculoskeletal injury [None]
  - Mental disorder [None]
  - Nervous system disorder [None]
  - Cardiovascular disorder [None]
  - Skin injury [None]
  - Emotional distress [None]
  - Depression [None]
